FAERS Safety Report 25225851 (Version 1)
Quarter: 2025Q2

REPORT INFORMATION
  Report Type: Report from Study
  Country: US (occurrence: US)
  Receive Date: 20250422
  Receipt Date: 20250422
  Transmission Date: 20250717
  Serious: Yes (Hospitalization)
  Sender: ABBVIE
  Company Number: US-ABBVIE-6235393

PATIENT
  Sex: Female

DRUGS (1)
  1. HUMIRA [Suspect]
     Active Substance: ADALIMUMAB
     Indication: Product used for unknown indication
     Route: 058
     Dates: start: 20240903

REACTIONS (3)
  - Post procedural haemorrhage [Recovering/Resolving]
  - Haemorrhoids [Recovering/Resolving]
  - Malaise [Not Recovered/Not Resolved]
